FAERS Safety Report 8563765-3 (Version None)
Quarter: 2012Q3

REPORT INFORMATION
  Report Type: 
  Country: None (occurrence: None)
  Receive Date: 20120803
  Receipt Date: 20120725
  Transmission Date: 20120928
  Serious: Yes (Other)
  Sender: FDA-Public Use
  Company Number: US-BRISTOL-MYERS SQUIBB COMPANY-16735888

PATIENT
  Age: 50 Year
  Sex: Male

DRUGS (1)
  1. ERBITUX [Suspect]
     Indication: LARYNGEAL CANCER
     Dosage: ERBITUX WAS HOLD FOR 1 WEEK AND THEN RESUMED.
     Route: 042
     Dates: start: 20120607

REACTIONS (5)
  - HAEMOPTYSIS [None]
  - FATIGUE [None]
  - SKIN FISSURES [None]
  - AGITATION [None]
  - RASH [None]
